FAERS Safety Report 13642011 (Version 1)
Quarter: 2017Q2

REPORT INFORMATION
  Report Type: Spontaneous
  Country: CA (occurrence: CA)
  Receive Date: 20170612
  Receipt Date: 20170612
  Transmission Date: 20170830
  Serious: Yes (Life-Threatening, Hospitalization)
  Sender: FDA-Public Use
  Company Number: CA-TEVA-776398ACC

PATIENT
  Age: 24 Year
  Sex: Female
  Weight: 95 kg

DRUGS (5)
  1. INSULIN, LISPRO [Suspect]
     Active Substance: INSULIN LISPRO
     Route: 065
  2. TRAZODONE [Suspect]
     Active Substance: TRAZODONE HYDROCHLORIDE
  3. DEPO-PROVERA [Suspect]
     Active Substance: MEDROXYPROGESTERONE ACETATE
     Indication: CONTRACEPTION
     Dosage: ONCE
     Route: 030
  4. INSULIN REGULAR [Suspect]
     Active Substance: INSULIN NOS
     Route: 065
  5. NYSTATIN ORAL SUSPENSION 100000UNIT/ML USP [Suspect]
     Active Substance: NYSTATIN

REACTIONS (4)
  - Diabetic ketoacidosis [Recovering/Resolving]
  - Pulmonary embolism [Recovering/Resolving]
  - Abdominal pain [Recovering/Resolving]
  - Malaise [Recovering/Resolving]
